FAERS Safety Report 25101728 (Version 2)
Quarter: 2025Q2

REPORT INFORMATION
  Report Type: Spontaneous
  Country: PL (occurrence: PL)
  Receive Date: 20250320
  Receipt Date: 20250618
  Transmission Date: 20250717
  Serious: Yes (Other)
  Sender: BRISTOL-MYERS SQUIBB COMPANY
  Company Number: PL-BRISTOL-MYERS SQUIBB COMPANY-2025-041287

PATIENT
  Age: 64 Year
  Sex: Female

DRUGS (2)
  1. NIVOLUMAB [Suspect]
     Active Substance: NIVOLUMAB
     Indication: Clear cell renal cell carcinoma
     Dates: start: 20230222
  2. IPILIMUMAB [Suspect]
     Active Substance: IPILIMUMAB
     Indication: Clear cell renal cell carcinoma
     Dates: start: 20230222

REACTIONS (1)
  - Lichen planus pemphigoides [Unknown]

NARRATIVE: CASE EVENT DATE: 20230101
